FAERS Safety Report 5347792-5 (Version None)
Quarter: 2007Q2

REPORT INFORMATION
  Report Type: 
  Country: None (occurrence: None)
  Receive Date: 20070516
  Receipt Date: 20070216
  Transmission Date: 20071010
  Serious: No
  Sender: FDA-Public Use
  Company Number: SPV1-2007-00836

PATIENT

DRUGS (1)
  1. FOSRENOL [Suspect]
     Dosage: 1000 MG, ORAL
     Route: 048

REACTIONS (2)
  - CONDITION AGGRAVATED [None]
  - PEPTIC ULCER [None]
